FAERS Safety Report 7344732-4 (Version None)
Quarter: 2011Q1

REPORT INFORMATION
  Report Type: 
  Country: None (occurrence: None)
  Receive Date: 20110310
  Receipt Date: 20110228
  Transmission Date: 20110831
  Serious: Yes (Other)
  Sender: FDA-Public Use
  Company Number: PHHY2011US11181

PATIENT
  Sex: Female
  Weight: 64 kg

DRUGS (9)
  1. MIRALAX [Concomitant]
  2. ASPIRIN [Concomitant]
     Dosage: 81 MG, DAILY
  3. EXJADE [Suspect]
     Indication: MYELODYSPLASTIC SYNDROME
     Dosage: 1250 MG, QD
     Route: 048
     Dates: start: 20101120
  4. TRAMADOL [Concomitant]
     Dosage: 100 MG, Q6H
  5. KLONOPIN [Concomitant]
     Dosage: 0.5 MG, AT BEDTIME.
  6. TRICOR [Concomitant]
  7. TRAMADOL [Concomitant]
     Dosage: 100 MG, PRN
  8. AMARYL [Concomitant]
  9. CYMBALTA [Concomitant]
     Dosage: 60 MG, DAILY

REACTIONS (9)
  - SINUSITIS [None]
  - CONSTIPATION [None]
  - DIABETES MELLITUS [None]
  - DEPRESSION [None]
  - HAEMOSIDEROSIS [None]
  - HYPERLIPIDAEMIA [None]
  - UPPER RESPIRATORY TRACT CONGESTION [None]
  - BRONCHIAL SECRETION RETENTION [None]
  - FACIAL PAIN [None]
